FAERS Safety Report 8156788-X (Version None)
Quarter: 2012Q1

REPORT INFORMATION
  Report Type: 
  Country: None (occurrence: None)
  Receive Date: 20120222
  Receipt Date: 20120217
  Transmission Date: 20120608
  Serious: Yes (Other)
  Sender: FDA-Public Use
  Company Number: US-JNJFOC-20120209927

PATIENT
  Age: 65 Year
  Sex: Female
  Weight: 79.36 kg

DRUGS (6)
  1. NICOTROL [Suspect]
     Indication: SMOKING CESSATION THERAPY
     Route: 065
     Dates: start: 20020101
  2. ASACOL [Concomitant]
     Indication: COLITIS
     Route: 048
  3. CELEBREX [Suspect]
     Indication: ARTHRITIS
     Route: 048
  4. ZOLOFT [Suspect]
     Indication: DEPRESSION
     Route: 065
     Dates: start: 19960101
  5. CELEBREX [Suspect]
     Indication: ARTHRALGIA
     Route: 048
  6. BUDESONIDE [Concomitant]
     Indication: COLITIS
     Route: 065

REACTIONS (2)
  - COLITIS MICROSCOPIC [None]
  - COLITIS [None]
